FAERS Safety Report 10583285 (Version 1)
Quarter: 2014Q4

REPORT INFORMATION
  Report Type: Spontaneous
  Country: GB (occurrence: None)
  Receive Date: 20141112
  Receipt Date: 20141112
  Transmission Date: 20150529
  Serious: Yes (Hospitalization, Other)
  Sender: FDA-Public Use
  Company Number: 2014-JP-0097

PATIENT
  Sex: Female

DRUGS (1)
  1. FARESTON (NON-US) (TOREMIFENE) [Suspect]
     Active Substance: TOREMIFENE CITRATE
     Indication: BREAST CANCER
     Dosage: X 1 PER DAY
     Route: 048
     Dates: start: 20140820, end: 20140910

REACTIONS (2)
  - Hypokalaemia [None]
  - Psychiatric decompensation [None]

NARRATIVE: CASE EVENT DATE: 20140910
